FAERS Safety Report 5951052-9 (Version None)
Quarter: 2008Q4

REPORT INFORMATION
  Report Type: 
  Country: None (occurrence: None)
  Receive Date: 20081112
  Receipt Date: 20081031
  Transmission Date: 20090506
  Serious: Yes (Hospitalization, Other)
  Sender: FDA-Public Use
  Company Number: JP-GILEAD-E2B_00000226

PATIENT
  Sex: Male

DRUGS (2)
  1. HEPSERA [Suspect]
     Indication: HEPATITIS B
     Dosage: 10MG PER DAY
     Route: 048
     Dates: start: 20081008
  2. ZEFIX [Suspect]
     Indication: HEPATITIS
     Dosage: 100MG PER DAY
     Dates: start: 20081008

REACTIONS (1)
  - PLATELET COUNT DECREASED [None]
